FAERS Safety Report 24392964 (Version 1)
Quarter: 2024Q4

REPORT INFORMATION
  Report Type: Spontaneous
  Country: US (occurrence: US)
  Receive Date: 20241003
  Receipt Date: 20241003
  Transmission Date: 20250114
  Serious: No
  Sender: GILEAD
  Company Number: US-GILEAD-2024-0689729

PATIENT
  Age: 34 Year
  Sex: Male

DRUGS (2)
  1. LENACAPAVIR [Suspect]
     Active Substance: LENACAPAVIR
     Indication: HIV infection
     Dosage: TAKE 2 TABLETS BY MOUTH 1 TIME A DAY ON DAY 1 AND DAY 2 THEN 1 TABLET ON DAY 8
     Route: 048
     Dates: start: 202404
  2. LENACAPAVIR [Suspect]
     Active Substance: LENACAPAVIR
     Dosage: 463.5ML/1.5 INJECT 927MG (2 X 1.5ML) UNDER THE SKIN IN 2 SEPARATE SITES EVERY 6 MONTHS
     Route: 058

REACTIONS (2)
  - Weight decreased [Not Recovered/Not Resolved]
  - Decreased appetite [Not Recovered/Not Resolved]
